FAERS Safety Report 17750627 (Version 1)
Quarter: 2020Q2

REPORT INFORMATION
  Report Type: Spontaneous
  Country: US (occurrence: US)
  Receive Date: 20200506
  Receipt Date: 20200506
  Transmission Date: 20200714
  Serious: Yes (Other)
  Sender: FDA-Public Use
  Company Number: US-CIPLA LTD.-2020US03072

PATIENT

DRUGS (4)
  1. TESTOSTERONE. [Suspect]
     Active Substance: TESTOSTERONE
     Dosage: 100 MILLIGRAM EVERY OTHER WEEK
     Route: 058
  2. TESTOSTERONE. [Suspect]
     Active Substance: TESTOSTERONE
     Dosage: 40 MILLIGRAM WEEKLY
     Route: 058
     Dates: start: 2019
  3. EXEMESTANE. [Suspect]
     Active Substance: EXEMESTANE
     Indication: PROPHYLACTIC CHEMOTHERAPY
     Dosage: 25 MILLIGRAM DAILY
     Route: 065
     Dates: start: 2019
  4. TESTOSTERONE. [Suspect]
     Active Substance: TESTOSTERONE
     Indication: TRANSGENDER HORMONAL THERAPY
     Dosage: 80 MILLIGRAM EVERY OTHER WEEK
     Route: 058
     Dates: start: 201702

REACTIONS (5)
  - Blood testosterone decreased [Recovered/Resolved]
  - Product use in unapproved indication [Unknown]
  - Blood testosterone increased [Recovered/Resolved]
  - Off label use [Unknown]
  - Oestradiol increased [Recovered/Resolved]

NARRATIVE: CASE EVENT DATE: 201808
